FAERS Safety Report 23787290 (Version 2)
Quarter: 2024Q2

REPORT INFORMATION
  Report Type: Report from Study
  Country: US (occurrence: US)
  Receive Date: 20240426
  Receipt Date: 20240506
  Transmission Date: 20240716
  Serious: No
  Sender: FDA-Public Use
  Company Number: US-ABBVIE-5716864

PATIENT
  Sex: Female
  Weight: 98 kg

DRUGS (11)
  1. HUMIRA [Suspect]
     Active Substance: ADALIMUMAB
     Indication: Pyoderma gangrenosum
     Dosage: FORM STRENGTH: 40 MG
     Route: 058
     Dates: start: 20240408, end: 20240408
  2. HUMIRA [Suspect]
     Active Substance: ADALIMUMAB
     Dosage: CITRATE FREE?DRUG END DATE: 2024
     Route: 058
     Dates: start: 202403
  3. HUMIRA [Suspect]
     Active Substance: ADALIMUMAB
     Dosage: DAY 7?FORM STRENGTH: 40 MG
     Route: 058
     Dates: start: 20240422
  4. HUMIRA [Suspect]
     Active Substance: ADALIMUMAB
     Dosage: DAY 1?FORM STRENGTH: 80 MG
     Route: 058
     Dates: start: 20240401, end: 20240401
  5. VITAMIN D [Concomitant]
     Active Substance: VITAMIN D NOS
     Indication: Vitamin supplementation
  6. PREDNISONE [Concomitant]
     Active Substance: PREDNISONE
     Indication: Product used for unknown indication
     Dosage: SEE AED
     Dates: start: 202307, end: 202311
  7. METOPROLOL [Concomitant]
     Active Substance: METOPROLOL
     Indication: Blood pressure abnormal
  8. LOSARTAN [Concomitant]
     Active Substance: LOSARTAN
     Indication: Blood pressure measurement
  9. ATORVASTATIN [Concomitant]
     Active Substance: ATORVASTATIN
     Indication: Blood cholesterol increased
  10. METFORMIN [Concomitant]
     Active Substance: METFORMIN HYDROCHLORIDE
     Indication: Diabetes mellitus
  11. CALCIUM [Concomitant]
     Active Substance: CALCIUM
     Indication: Mineral supplementation

REACTIONS (6)
  - Pain in extremity [Unknown]
  - Pain [Unknown]
  - Off label use [Recovering/Resolving]
  - Arthralgia [Recovering/Resolving]
  - Weight increased [Not Recovered/Not Resolved]
  - Injection site bruising [Recovering/Resolving]

NARRATIVE: CASE EVENT DATE: 20240101
